FAERS Safety Report 6898410-6 (Version None)
Quarter: 2010Q3

REPORT INFORMATION
  Report Type: 
  Country: None (occurrence: None)
  Receive Date: 20100802
  Receipt Date: 20071005
  Transmission Date: 20110219
  Serious: Yes (Other)
  Sender: FDA-Public Use
  Company Number: US-PFIZER INC-2007083553

PATIENT
  Sex: Female
  Weight: 104.54 kg

DRUGS (37)
  1. LYRICA [Suspect]
     Indication: OSTEOARTHRITIS
     Dosage: EVERYDAY
     Dates: start: 20070901
  2. LYRICA [Interacting]
  3. CYMBALTA [Interacting]
  4. ISOSORBIDE [Concomitant]
  5. ADVAIR DISKUS 100/50 [Concomitant]
  6. FUROSEMIDE [Concomitant]
  7. METOPROLOL [Concomitant]
  8. POTASSIUM CHLORIDE [Concomitant]
  9. COZAAR [Concomitant]
  10. COZAAR [Concomitant]
  11. ACETYLSALICYLIC ACID SRT [Concomitant]
  12. ACETYLSALICYLIC ACID SRT [Concomitant]
  13. PLAVIX [Concomitant]
  14. PLAVIX [Concomitant]
  15. SYNTHROID [Concomitant]
  16. SYNTHROID [Concomitant]
  17. NEXIUM [Concomitant]
  18. NEXIUM [Concomitant]
  19. MONTELUKAST [Concomitant]
  20. MONTELUKAST [Concomitant]
  21. ZOCOR [Concomitant]
  22. ZOCOR [Concomitant]
  23. LORAZEPAM [Concomitant]
  24. LORAZEPAM [Concomitant]
  25. METFORMIN HCL [Concomitant]
  26. METFORMIN HCL [Concomitant]
  27. CALTRATE [Concomitant]
  28. CALTRATE [Concomitant]
  29. THIAMINE [Concomitant]
  30. THIAMINE [Concomitant]
  31. NIACIN [Concomitant]
  32. NIACIN [Concomitant]
  33. VITAMIN B6 [Concomitant]
  34. VITAMIN B6 [Concomitant]
  35. FLAXSEED OIL [Concomitant]
  36. ALL OTHER THERAPEUTIC PRODUCTS [Concomitant]
  37. XOPENEX [Concomitant]

REACTIONS (8)
  - ANAEMIA [None]
  - DISTURBANCE IN ATTENTION [None]
  - DIZZINESS [None]
  - DRUG INTERACTION [None]
  - FEELING ABNORMAL [None]
  - HYPOAESTHESIA [None]
  - PARAESTHESIA [None]
  - PSYCHIATRIC SYMPTOM [None]
